FAERS Safety Report 15382990 (Version 2)
Quarter: 2021Q1

REPORT INFORMATION
  Report Type: Report from Study
  Country: US (occurrence: US)
  Receive Date: 20180913
  Receipt Date: 20210105
  Transmission Date: 20210419
  Serious: Yes (Hospitalization, Other)
  Sender: FDA-Public Use
  Company Number: US-ASTELLAS-2017US038961

PATIENT
  Age: 66 Year
  Sex: Male

DRUGS (2)
  1. ENZALUTAMIDE [Suspect]
     Active Substance: ENZALUTAMIDE
     Route: 048
  2. ENZALUTAMIDE [Suspect]
     Active Substance: ENZALUTAMIDE
     Indication: PROSTATE CANCER
     Route: 048
     Dates: start: 20170508

REACTIONS (10)
  - Haemorrhage [Unknown]
  - Feeling abnormal [Not Recovered/Not Resolved]
  - Product availability issue [Unknown]
  - Abdominal pain upper [Unknown]
  - Pain [Unknown]
  - Skin disorder [Unknown]
  - Malaise [Unknown]
  - Peyronie^s disease [Unknown]
  - Somnolence [Recovered/Resolved]
  - Haemorrhoids [Unknown]

NARRATIVE: CASE EVENT DATE: 201805
